FAERS Safety Report 4696095-0 (Version None)
Quarter: 2005Q2

REPORT INFORMATION
  Report Type: 
  Country: None (occurrence: None)
  Receive Date: 20050620
  Receipt Date: 20050606
  Transmission Date: 20051028
  Serious: Yes (Death, Hospitalization)
  Sender: FDA-Public Use
  Company Number: 2005EU001157

PATIENT
  Age: 55 Year
  Sex: Female

DRUGS (3)
  1. PROGRAF [Suspect]
     Indication: SMALL INTESTINE TRANSPLANT
     Dosage: 0.8 MG/KG/D
  2. DACLIZUMAB (DACLIZUMAB) [Concomitant]
  3. CORTICOSTEROIDS [Concomitant]

REACTIONS (3)
  - BACTERIAL SEPSIS [None]
  - CYTOMEGALOVIRUS ENTERITIS [None]
  - FUNGAL SEPSIS [None]
